FAERS Safety Report 4491525-1 (Version None)
Quarter: 2004Q4

REPORT INFORMATION
  Report Type: 
  Country: None (occurrence: None)
  Receive Date: 20041103
  Receipt Date: 20041022
  Transmission Date: 20050328
  Serious: Yes (Disabling)
  Sender: FDA-Public Use
  Company Number: JP-BRISTOL-MYERS SQUIBB COMPANY-12741880

PATIENT
  Age: 64 Year
  Sex: Male

DRUGS (1)
  1. MAXIPIME [Suspect]
     Indication: POSTOPERATIVE INFECTION
     Route: 042
     Dates: start: 20040823, end: 20040902

REACTIONS (1)
  - HEPATIC FUNCTION ABNORMAL [None]
